FAERS Safety Report 15316733 (Version 1)
Quarter: 2018Q3

REPORT INFORMATION
  Report Type: Spontaneous
  Country: NL (occurrence: NL)
  Receive Date: 20180824
  Receipt Date: 20180824
  Transmission Date: 20181010
  Serious: Yes (Hospitalization, Other)
  Sender: FDA-Public Use
  Company Number: NL-SA-2018SA228038

PATIENT
  Age: 56 Year
  Sex: Male
  Weight: 71 kg

DRUGS (19)
  1. NIFEDIPINE. [Concomitant]
     Active Substance: NIFEDIPINE
     Dosage: 30 MG, QD
  2. LORAZEPAM. [Concomitant]
     Active Substance: LORAZEPAM
     Dosage: 1 MG, QD
  3. METOPROLOL. [Concomitant]
     Active Substance: METOPROLOL
     Dosage: 200 MG, QD
  4. LANOXIN [Concomitant]
     Active Substance: DIGOXIN
     Dosage: 125 UG, QD
  5. LISINOPRIL. [Concomitant]
     Active Substance: LISINOPRIL
     Dosage: 20 MG, QD
  6. MOVICOLON [Concomitant]
     Active Substance: POLYETHYLENE GLYCOL 3350\POTASSIUM CHLORIDE\SODIUM BICARBONATE\SODIUM CHLORIDE
     Dosage: 1 DF, PRN
  7. CLINDAMYCINE [CLINDAMYCIN] [Concomitant]
     Dosage: 600 MG, Q8H
  8. HALOPERIDOL. [Concomitant]
     Active Substance: HALOPERIDOL
     Dosage: 1 MG, Q8H
  9. TACROLIMUS MONOHYDRATE [Concomitant]
     Active Substance: TACROLIMUS
     Dosage: 1 DF, Q12H
  10. DOXYCYCLINE HYDROCHLORIDE [Concomitant]
     Active Substance: DOXYCYCLINE HYDROCHLORIDE
     Dosage: 100 MG, Q12H
  11. MICONAZOLE. [Concomitant]
     Active Substance: MICONAZOLE
     Dosage: 1 DF, Q12H
  12. METFORMIN [Concomitant]
     Active Substance: METFORMIN HYDROCHLORIDE
     Dosage: 500 MG, Q12H;2DD1
  13. FLAMIGEL [Concomitant]
     Dosage: 1 DF, QD
  14. ALIROCUMAB [Suspect]
     Active Substance: ALIROCUMAB
     Indication: HYPERCHOLESTEROLAEMIA
     Dosage: 1 DF, QOW
     Dates: start: 20180322
  15. ALIROCUMAB PREFILLED PEN [Suspect]
     Active Substance: ALIROCUMAB
     Indication: HYPERCHOLESTEROLAEMIA
     Dosage: UNK UNK, QOW
     Dates: start: 20180322
  16. PARACETAMOL [Concomitant]
     Active Substance: ACETAMINOPHEN
     Dosage: 1000 MG, Q6H
  17. DALTEPARINE SODIQUE [Concomitant]
     Dosage: 0.3 ML, BID
  18. TAMSULOSINE [TAMSULOSIN] [Concomitant]
     Dosage: 1 DF, QD
  19. FENTANYL. [Concomitant]
     Active Substance: FENTANYL
     Dosage: 200 UG, Q4H
     Route: 060

REACTIONS (2)
  - Pyoderma gangrenosum [Recovering/Resolving]
  - Hyponatraemia [Unknown]

NARRATIVE: CASE EVENT DATE: 20180419
